FAERS Safety Report 21089189 (Version 1)
Quarter: 2022Q3

REPORT INFORMATION
  Report Type: Spontaneous
  Country: US (occurrence: None)
  Receive Date: 20220715
  Receipt Date: 20220715
  Transmission Date: 20221026
  Serious: Yes (Life-Threatening)
  Sender: FDA-Public Use
  Company Number: None

PATIENT
  Age: 47 Year
  Sex: Female
  Weight: 132.9 kg

DRUGS (1)
  1. LUMASON [Suspect]
     Active Substance: SULFUR HEXAFLUORIDE
     Indication: Echocardiogram
     Dosage: FREQUENCY : ONCE;?
     Route: 042

REACTIONS (4)
  - Malaise [None]
  - Unresponsive to stimuli [None]
  - Cardio-respiratory arrest [None]
  - Contrast media reaction [None]

NARRATIVE: CASE EVENT DATE: 20220713
